FAERS Safety Report 5755914-7 (Version None)
Quarter: 2008Q2

REPORT INFORMATION
  Report Type: 
  Country: None (occurrence: None)
  Receive Date: 20080602
  Receipt Date: 20080520
  Transmission Date: 20081010
  Serious: Yes (Life-Threatening, Hospitalization, Disabling)
  Sender: FDA-Public Use
  Company Number: US-ELI_LILLY_AND_COMPANY-US200805004077

PATIENT
  Age: 53 Year
  Sex: Female

DRUGS (5)
  1. FLUOXETINE HYDROCHLORIDE [Interacting]
     Indication: DEPRESSIVE SYMPTOM
     Dosage: 40 MG, DAILY (1/D)
  2. OLANZAPINE [Suspect]
     Dosage: 5 MG, DAILY (1/D)
  3. METHADONE HCL [Interacting]
     Dosage: 50 MG, DAILY (1/D)
  4. BUPROPION HCL [Concomitant]
     Indication: DEPRESSIVE SYMPTOM
     Dosage: 150 MG, DAILY (1/D)
  5. VENLAFAXINE HCL [Interacting]
     Dosage: 75 MG, DAILY (1/D)

REACTIONS (6)
  - DELIRIUM [None]
  - DRUG INEFFECTIVE [None]
  - DRUG INTERACTION [None]
  - INFECTION [None]
  - PNEUMONIA [None]
  - SEROTONIN SYNDROME [None]
